FAERS Safety Report 4542482-0 (Version None)
Quarter: 2004Q4

REPORT INFORMATION
  Report Type: 
  Country: None (occurrence: None)
  Receive Date: 20041227
  Receipt Date: 20041214
  Transmission Date: 20050328
  Serious: Yes (Hospitalization)
  Sender: FDA-Public Use
  Company Number: 2004114994

PATIENT
  Age: 70 Year
  Sex: Female
  Weight: 95 kg

DRUGS (4)
  1. CLINDAMYCIN HYDROCHLORIDE [Suspect]
     Indication: SWEAT GLAND INFECTION
  2. CIPROFLOXACIN [Suspect]
     Indication: SWEAT GLAND INFECTION
  3. ERYTHROPOEITIN (ERYTHROPOIETIN) [Suspect]
     Indication: NEPHROGENIC ANAEMIA
     Dosage: (20000 IU 1 IN 1 WK) SUBCUTANEOUS
     Route: 058
     Dates: start: 20040416
  4. WARFARIN SODIUM [Concomitant]

REACTIONS (20)
  - ABDOMINAL ABSCESS [None]
  - ABDOMINAL PAIN LOWER [None]
  - BLOOD CREATININE INCREASED [None]
  - DRUG HYPERSENSITIVITY [None]
  - ENTEROCOCCAL INFECTION [None]
  - ERYTHEMA [None]
  - HAEMODIALYSIS [None]
  - HAEMOGLOBIN DECREASED [None]
  - INTERNATIONAL NORMALISED RATIO INCREASED [None]
  - LOOSE STOOLS [None]
  - NEPHRITIS INTERSTITIAL [None]
  - PAIN [None]
  - PSEUDOMONAS INFECTION [None]
  - PYREXIA [None]
  - RENAL FAILURE [None]
  - SKIN LESION [None]
  - STAPHYLOCOCCAL INFECTION [None]
  - SWEAT GLAND INFECTION [None]
  - SWELLING [None]
  - WOUND INFECTION [None]
